FAERS Safety Report 23914216 (Version 1)
Quarter: 2024Q2

REPORT INFORMATION
  Report Type: Spontaneous
  Country: US (occurrence: US)
  Receive Date: 20240529
  Receipt Date: 20240529
  Transmission Date: 20240715
  Serious: No
  Sender: FDA-Public Use
  Company Number: US-GLANDPHARMA-US-2024GLNSPO00261

PATIENT
  Age: 59 Year

DRUGS (1)
  1. ADENOSINE [Suspect]
     Active Substance: ADENOSINE
     Indication: Product used for unknown indication
     Route: 065

REACTIONS (2)
  - Fear of death [Unknown]
  - Feeling abnormal [Unknown]
